FAERS Safety Report 22224155 (Version 2)
Quarter: 2023Q2

REPORT INFORMATION
  Report Type: Spontaneous
  Country: US (occurrence: US)
  Receive Date: 20230418
  Receipt Date: 20230519
  Transmission Date: 20230721
  Serious: No
  Sender: FDA-Public Use
  Company Number: US-BRISTOL-MYERS SQUIBB COMPANY-2023-054265

PATIENT
  Age: 73 Year
  Sex: Male
  Weight: 80.2 kg

DRUGS (1)
  1. LENALIDOMIDE [Suspect]
     Active Substance: LENALIDOMIDE
     Indication: Plasma cell myeloma
     Route: 048
     Dates: start: 20230328

REACTIONS (3)
  - Pain in extremity [Not Recovered/Not Resolved]
  - Off label use [Unknown]
  - Fatigue [Unknown]
